FAERS Safety Report 8326973 (Version 3)
Quarter: 2012Q4

REPORT INFORMATION
  Report Type: 
  Country: US (occurrence: US)
  Receive Date: 20120109
  Receipt Date: 20120924
  Transmission Date: 20130627
  Serious: Yes (Other)
  Sender: FDA-Public Use
  Company Number: US-PFIZER INC-2012004848

PATIENT
  Age: 59 Year
  Sex: Female
  Weight: 90.7 kg

DRUGS (7)
  1. CHANTIX [Suspect]
     Indication: SMOKING CESSATION THERAPY
     Dosage: UNK
     Route: 048
  2. CHANTIX [Suspect]
     Dosage: UNK
     Route: 048
     Dates: start: 201101, end: 201106
  3. CHANTIX [Suspect]
     Dosage: 0.5 mg, daily
     Route: 048
     Dates: start: 201205, end: 2012
  4. CHANTIX [Suspect]
     Dosage: UNK
     Route: 048
     Dates: start: 2012, end: 2012
  5. PROZAC [Concomitant]
     Indication: DEPRESSION
     Dosage: 40 mg, daily
  6. THYROXINE [Concomitant]
     Indication: THYROID DISORDER
     Dosage: 150 ug, six days in a week
  7. SIMVASTATIN [Concomitant]
     Indication: HIGH DENSITY LIPOPROTEIN INCREASED
     Dosage: 20 mg, daily

REACTIONS (6)
  - Glucose tolerance impaired [Unknown]
  - Confusional state [Unknown]
  - Stress [Unknown]
  - Nasopharyngitis [Unknown]
  - Abnormal dreams [Unknown]
  - Wheezing [Unknown]
